FAERS Safety Report 9439975 (Version 2)
Quarter: 2013Q4

REPORT INFORMATION
  Report Type: Report from Study
  Country: GB (occurrence: GB)
  Receive Date: 20130805
  Receipt Date: 20131011
  Transmission Date: 20140711
  Serious: Yes (Hospitalization)
  Sender: FDA-Public Use
  Company Number: GB-ROCHE-1256945

PATIENT
  Sex: Female

DRUGS (5)
  1. TOCILIZUMAB [Suspect]
     Indication: RHEUMATOID ARTHRITIS
     Route: 065
     Dates: start: 20130116
  2. METHOTREXATE [Concomitant]
     Dosage: DURATION:FOR 14 DAYS
     Route: 048
  3. CITALOPRAM [Concomitant]
     Dosage: MORNING, DURATION FOR 7 DAYS
     Route: 065
  4. FOLIC ACID [Concomitant]
     Dosage: TUESDAY-FRIDAY, DURATION FOR 28 DAYS.
     Route: 065
  5. CO-CODAMOL [Concomitant]
     Dosage: FORM STRENGTH: 30 MG/500 MG;  DOSE: 2 FOR 7 DAYS
     Route: 048

REACTIONS (1)
  - Migraine [Unknown]
